FAERS Safety Report 4573673-0 (Version None)
Quarter: 2005Q1

REPORT INFORMATION
  Report Type: 
  Country: None (occurrence: None)
  Receive Date: 20050203
  Receipt Date: 20050124
  Transmission Date: 20050727
  Serious: Yes (Other)
  Sender: FDA-Public Use
  Company Number: 206128

PATIENT
  Age: 30 Year
  Sex: Female

DRUGS (8)
  1. NUTROPIN AQ [Suspect]
     Indication: GROWTH HORMONE DEFICIENCY
     Dosage: 0.6 MG, QD, SUBCUTANEOUS
     Route: 058
     Dates: start: 20040423
  2. PREVACID [Concomitant]
  3. METHADONE HCL [Concomitant]
  4. SINGULAIR [Concomitant]
  5. PROVENTIL (ALBUTEROL SULFATE, ALBUTEROL) [Concomitant]
  6. COMBIVENT (ALBUTEROL, ALBUTEROL SULFATE, IPRATROPIUIM BROMIDE) [Concomitant]
  7. PROAMATINE [Concomitant]
  8. DIGOXIN [Concomitant]

REACTIONS (15)
  - AFFECT LABILITY [None]
  - AMNESIA [None]
  - BLOOD GLUCOSE INCREASED [None]
  - CHEST PAIN [None]
  - CRYING [None]
  - DISORIENTATION [None]
  - FEELING ABNORMAL [None]
  - HEADACHE [None]
  - HYPOAESTHESIA [None]
  - OVERDOSE [None]
  - PALPITATIONS [None]
  - PHARMACEUTICAL PRODUCT COMPLAINT [None]
  - SLEEP WALKING [None]
  - SOMNOLENCE [None]
  - SWELLING [None]
